FAERS Safety Report 19820993 (Version 1)
Quarter: 2021Q3

REPORT INFORMATION
  Report Type: Spontaneous
  Country: US (occurrence: US)
  Receive Date: 20210913
  Receipt Date: 20210913
  Transmission Date: 20211014
  Serious: Yes (Hospitalization)
  Sender: FDA-Public Use
  Company Number: US-MYLANLABS-2021M1059777

PATIENT
  Age: 68 Year
  Sex: Female

DRUGS (9)
  1. MIDOSTAURIN [Concomitant]
     Active Substance: MIDOSTAURIN
     Indication: ACUTE MYELOID LEUKAEMIA
     Dosage: UNK UNK, CYCLE
     Route: 065
  2. GILTERITINIB [Concomitant]
     Active Substance: GILTERITINIB
     Indication: ACUTE MYELOID LEUKAEMIA
     Dosage: 120 MILLIGRAM, QD
     Route: 048
  3. DECITABINE. [Concomitant]
     Active Substance: DECITABINE
     Indication: ACUTE MYELOID LEUKAEMIA
     Dosage: UNK UNK, CYCLE,3 CYCLES
     Route: 065
  4. IDARUBICIN [Suspect]
     Active Substance: IDARUBICIN
     Indication: ACUTE MYELOID LEUKAEMIA
     Dosage: UNK, CYCLE, CYTARABINE AND IDARUBICIN (7+3)
     Route: 065
  5. CLADRIBINE. [Suspect]
     Active Substance: CLADRIBINE
     Indication: ACUTE MYELOID LEUKAEMIA
     Route: 065
  6. CYTARABINE. [Suspect]
     Active Substance: CYTARABINE
     Indication: ACUTE MYELOID LEUKAEMIA
     Dosage: UNK UNK, CYCLE,CYTARABINE AND IDARUBICIN (7+3)
     Route: 065
  7. CYTARABINE. [Suspect]
     Active Substance: CYTARABINE
     Dosage: UNK UNK, CYCLE,CYTARABINE AND DAUNORUBICIN (7+3)
     Route: 065
  8. DAUNORUBICIN [Suspect]
     Active Substance: DAUNORUBICIN
     Indication: ACUTE MYELOID LEUKAEMIA
     Dosage: UNK UNK, CYCLE,CYTARABINE AND DAUNORUBICIN (7+3),
     Route: 065
  9. SORAFENIB [Concomitant]
     Active Substance: SORAFENIB
     Indication: ACUTE MYELOID LEUKAEMIA
     Route: 065

REACTIONS (10)
  - Sinusitis [Unknown]
  - Mucosal inflammation [Unknown]
  - Vaginal haemorrhage [Unknown]
  - Hyperbilirubinaemia [Unknown]
  - Colitis [Unknown]
  - Renal failure [Unknown]
  - Hypoglycaemia [Unknown]
  - Pneumonia [Unknown]
  - Empyema [Unknown]
  - Febrile neutropenia [Recovering/Resolving]
